FAERS Safety Report 13044139 (Version 1)
Quarter: 2016Q4

REPORT INFORMATION
  Report Type: Spontaneous
  Country: US (occurrence: US)
  Receive Date: 20161220
  Receipt Date: 20161220
  Transmission Date: 20170207
  Serious: Yes (Other)
  Sender: FDA-Public Use
  Company Number: US-ROCHE-1018040

PATIENT
  Age: 45 Year
  Sex: Male

DRUGS (1)
  1. ZELBORAF [Suspect]
     Active Substance: VEMURAFENIB
     Indication: METASTATIC MALIGNANT MELANOMA
     Route: 048
     Dates: start: 20111109

REACTIONS (7)
  - Rash [Unknown]
  - Nausea [Unknown]
  - Blister [Recovered/Resolved]
  - Fatigue [Unknown]
  - Sunburn [Recovered/Resolved]
  - Skin exfoliation [Unknown]
  - Swelling face [Unknown]

NARRATIVE: CASE EVENT DATE: 20120305
